FAERS Safety Report 25492923 (Version 4)
Quarter: 2025Q3

REPORT INFORMATION
  Report Type: Report from Study
  Country: US (occurrence: US)
  Receive Date: 20250630
  Receipt Date: 20250805
  Transmission Date: 20251021
  Serious: No
  Sender: TAKEDA
  Company Number: US-TAKEDA-2025TUS058639

PATIENT
  Sex: Male

DRUGS (1)
  1. PONATINIB [Suspect]
     Active Substance: PONATINIB
     Indication: Chronic myeloid leukaemia
     Dosage: 45 MILLIGRAM, QD

REACTIONS (5)
  - No adverse event [Unknown]
  - Off label use [Unknown]
  - Product dose omission issue [Unknown]
  - Product dose omission in error [Unknown]
  - Drug ineffective [Unknown]
